FAERS Safety Report 5020709-9 (Version None)
Quarter: 2006Q2

REPORT INFORMATION
  Report Type: 
  Country: None (occurrence: None)
  Receive Date: 20060601
  Receipt Date: 20060517
  Transmission Date: 20061013
  Serious: Yes (Other)
  Sender: FDA-Public Use
  Company Number: 2006-BP-05609RO

PATIENT
  Age: 31 Year
  Sex: Female

DRUGS (1)
  1. METHADONE HCL [Suspect]
     Indication: DRUG WITHDRAWAL MAINTENANCE THERAPY
     Dosage: 70 MG DAILY (SEE TEXT), PO
     Route: 048

REACTIONS (4)
  - ACANTHOSIS [None]
  - ERYTHEMA MULTIFORME [None]
  - SKIN EXFOLIATION [None]
  - VIRAL RASH [None]
